FAERS Safety Report 10098596 (Version 1)
Quarter: 2014Q2

REPORT INFORMATION
  Report Type: Spontaneous
  Country: US (occurrence: US)
  Receive Date: 20140423
  Receipt Date: 20140423
  Transmission Date: 20141212
  Serious: No
  Sender: FDA-Public Use
  Company Number: US-BAYER-2014-058750

PATIENT
  Age: 19 Month
  Sex: Female
  Weight: 10.43 kg

DRUGS (1)
  1. ALEVE CAPLET [Suspect]
     Dosage: 1 DF, ONCE
     Route: 048
     Dates: start: 20140418, end: 20140418

REACTIONS (1)
  - Accidental exposure to product by child [None]
